FAERS Safety Report 4356333-0 (Version None)
Quarter: 2004Q2

REPORT INFORMATION
  Report Type: 
  Country: None (occurrence: None)
  Receive Date: 20040506
  Receipt Date: 20040423
  Transmission Date: 20050107
  Serious: Yes (Hospitalization)
  Sender: FDA-Public Use
  Company Number: 200411531GDS

PATIENT
  Age: 89 Year
  Sex: Male

DRUGS (9)
  1. ASPIRIN [Suspect]
     Indication: PROPHYLAXIS
     Dosage: 100 MG, TOTAL DAILY, ORAL
     Route: 048
     Dates: end: 20040201
  2. CLOPIDOGREL BISULFATE [Suspect]
     Indication: PROPHYLAXIS
     Dosage: 75 MG, TOTAL DAILY, ORAL
     Route: 048
     Dates: end: 20040201
  3. LEVODOPA/BENSERAZIDE [Concomitant]
  4. 1-METHIONINE [Concomitant]
  5. DONEPEZIL HCL [Concomitant]
  6. ESOMEPRAZOLE [Concomitant]
  7. SIMVASTATIN [Concomitant]
  8. CEFPODOXIME PROXETIL [Concomitant]
  9. TOPERISONE [Concomitant]

REACTIONS (1)
  - HAEMATOMA [None]
